FAERS Safety Report 9690760 (Version 1)
Quarter: 2013Q4

REPORT INFORMATION
  Report Type: Spontaneous
  Country: US (occurrence: None)
  Receive Date: 20131114
  Receipt Date: 20131114
  Transmission Date: 20140711
  Serious: No
  Sender: FDA-Public Use
  Company Number: None

PATIENT
  Age: 64 Year
  Sex: Female
  Weight: 77.11 kg

DRUGS (1)
  1. AMBIEN CR [Suspect]
     Indication: SLEEP APNOEA SYNDROME
     Dosage: PILLS PRN/AS NEEDED ORAL
     Route: 048

REACTIONS (2)
  - Somnambulism [None]
  - Lacrimation increased [None]
